FAERS Safety Report 8183161-0 (Version None)
Quarter: 2012Q1

REPORT INFORMATION
  Report Type: 
  Country: None (occurrence: None)
  Receive Date: 20120305
  Receipt Date: 20120301
  Transmission Date: 20120608
  Serious: Yes (Death, Hospitalization)
  Sender: FDA-Public Use
  Company Number: GB-SHIRE-ALL1-2012-00767

PATIENT
  Sex: Male
  Weight: 29 kg

DRUGS (1)
  1. VPRIV [Suspect]
     Indication: GAUCHER'S DISEASE
     Dosage: 2800 IU, 1X/2WKS
     Route: 041
     Dates: start: 20100327

REACTIONS (3)
  - LOWER RESPIRATORY TRACT INFECTION [None]
  - OFF LABEL USE [None]
  - DEATH [None]
